FAERS Safety Report 9029658 (Version 3)
Quarter: 2013Q3

REPORT INFORMATION
  Report Type: Report from Study
  Country: AU (occurrence: AU)
  Receive Date: 20130125
  Receipt Date: 20130731
  Transmission Date: 20140515
  Serious: Yes (Hospitalization)
  Sender: FDA-Public Use
  Company Number: PHHO2010AU09132

PATIENT
  Age: 39 Year
  Sex: Female
  Weight: 57.1 kg

DRUGS (6)
  1. PLACEBO [Suspect]
     Indication: CARCINOID TUMOUR
  2. RAD001 [Suspect]
     Indication: CARCINOID TUMOUR
     Dosage: 5 MG, QD
     Route: 048
     Dates: start: 20071010
  3. WARFARIN [Suspect]
     Indication: VENA CAVA THROMBOSIS
     Route: 048
     Dates: start: 20080716, end: 20100610
  4. NSAID^S [Suspect]
  5. NOVOMIX [Concomitant]
     Indication: DIABETES MELLITUS
     Dosage: 1 DF (6-18 UNITS), TID
     Route: 058
  6. SANDOSTATIN LAR [Concomitant]
     Indication: CARCINOID TUMOUR

REACTIONS (8)
  - Gastric ulcer [Recovered/Resolved]
  - Upper gastrointestinal haemorrhage [Recovered/Resolved]
  - Haemoptysis [Recovered/Resolved]
  - Melaena [Recovered/Resolved]
  - Haemoglobin decreased [Recovered/Resolved]
  - International normalised ratio increased [Recovered/Resolved]
  - Gastroenteritis viral [Recovered/Resolved]
  - Pain [Recovering/Resolving]
